FAERS Safety Report 13693300 (Version 1)
Quarter: 2017Q2

REPORT INFORMATION
  Report Type: Spontaneous
  Country: US (occurrence: US)
  Receive Date: 20170626
  Receipt Date: 20170626
  Transmission Date: 20170830
  Serious: Yes (Other)
  Sender: FDA-Public Use
  Company Number: None

PATIENT
  Age: 26 Year
  Sex: Female
  Weight: 72 kg

DRUGS (4)
  1. MORINGA OLEIFERA LEAF [Concomitant]
     Active Substance: MORINGA OLEIFERA LEAF
  2. MEDROL [Suspect]
     Active Substance: METHYLPREDNISOLONE
     Indication: URTICARIA
     Dosage: OTHER STRENGTH:MG;QUANTITY:1 TABLET(S);OTHER FREQUENCY:TAPERED DOSE.;?
     Route: 048
     Dates: start: 20170620, end: 20170625
  3. VITAL FUSION PRENATAL GUMMY VITAMIN [Concomitant]
  4. MEDROL [Suspect]
     Active Substance: METHYLPREDNISOLONE
     Indication: HYPERSENSITIVITY
     Dosage: OTHER STRENGTH:MG;QUANTITY:1 TABLET(S);OTHER FREQUENCY:TAPERED DOSE.;?
     Route: 048
     Dates: start: 20170620, end: 20170625

REACTIONS (1)
  - Suppressed lactation [None]

NARRATIVE: CASE EVENT DATE: 20170622
